FAERS Safety Report 15663954 (Version 3)
Quarter: 2019Q2

REPORT INFORMATION
  Report Type: Report from Study
  Country: US (occurrence: US)
  Receive Date: 20181128
  Receipt Date: 20190510
  Transmission Date: 20190711
  Serious: Yes (Hospitalization, Other)
  Sender: FDA-Public Use
  Company Number: PHEH2018US049805

PATIENT
  Sex: Male

DRUGS (1)
  1. ENTRESTO [Suspect]
     Active Substance: SACUBITRIL\VALSARTAN
     Indication: PRODUCT USED FOR UNKNOWN INDICATION
     Dosage: 1 DF, UNK (24MG OF SACUBITRIL, 26MG OF VALSARTAN)
     Route: 048

REACTIONS (5)
  - Chest pain [Unknown]
  - Nerve compression [Unknown]
  - Suicidal ideation [Unknown]
  - Pain [Unknown]
  - Back disorder [Unknown]
